FAERS Safety Report 4478982-1 (Version None)
Quarter: 2004Q4

REPORT INFORMATION
  Report Type: 
  Country: None (occurrence: None)
  Receive Date: 20041015
  Receipt Date: 20041006
  Transmission Date: 20050328
  Serious: Yes (Hospitalization)
  Sender: FDA-Public Use
  Company Number: GBWYE098308OCT04

PATIENT
  Age: 34 Year
  Sex: Female

DRUGS (1)
  1. ADVIL [Suspect]
     Indication: NECK INJURY

REACTIONS (1)
  - INTESTINAL PERFORATION [None]
